FAERS Safety Report 13388172 (Version 1)
Quarter: 2017Q1

REPORT INFORMATION
  Report Type: Report from Study
  Country: US (occurrence: US)
  Receive Date: 20170330
  Receipt Date: 20170330
  Transmission Date: 20170429
  Serious: Yes (Hospitalization, Other)
  Sender: FDA-Public Use
  Company Number: US-TEVA-753706USA

PATIENT
  Sex: Male

DRUGS (2)
  1. COPAXONE [Suspect]
     Active Substance: GLATIRAMER ACETATE
     Indication: MULTIPLE SCLEROSIS
     Route: 058
     Dates: start: 20140513, end: 20150102
  2. WARFARIN [Suspect]
     Active Substance: WARFARIN
     Indication: THROMBOLYSIS
     Route: 065

REACTIONS (6)
  - Skin discolouration [Unknown]
  - Hospitalisation [Unknown]
  - Internal haemorrhage [Unknown]
  - Pulmonary thrombosis [Unknown]
  - Chondropathy [Unknown]
  - Adverse reaction [Unknown]

NARRATIVE: CASE EVENT DATE: 2015
